FAERS Safety Report 8503889-X (Version None)
Quarter: 2012Q3

REPORT INFORMATION
  Report Type: 
  Country: None (occurrence: None)
  Receive Date: 20120702
  Receipt Date: 20120620
  Transmission Date: 20120928
  Serious: Yes (Hospitalization)
  Sender: FDA-Public Use
  Company Number: 2010CP000017

PATIENT
  Age: 79 Year
  Sex: Male

DRUGS (13)
  1. SPIRAMYCIN (SPIRAMYCIN) [Suspect]
     Indication: URINARY TRACT INFECTION
     Dates: start: 20090301, end: 20090408
  2. ANDROCUR (CYPROTERONE ACETATE) [Suspect]
     Indication: NEOPLASM PROSTATE
     Dosage: 200 MG;1/1 DAY;
     Dates: end: 20090408
  3. FERROUS FUMARATE [Suspect]
     Indication: IRON DEFICIENCY
     Dates: end: 20090408
  4. AMITRIPTYLINE HYDROCHLORIDE [Suspect]
     Indication: DEPRESSION
     Dosage: 25 MGL; 1/1 DAY;
     Dates: end: 20090408
  5. CALCIPARINE [Suspect]
     Indication: PROPHYLAXIS
     Dosage: .4 ML; 2/1 DAY; IV
     Route: 042
     Dates: start: 20090408, end: 20090410
  6. FUROSEMIDE (FUROSEMIDE) [Suspect]
     Dosage: 40 MG; 1/1 DAY
     Dates: end: 20090408
  7. ROCEPHINE (CEFTRIAXINE SODIUM) [Suspect]
     Indication: URINARY TRACT INFECTION
     Dosage: 1 DOSAGE FORM; 1/1 DAY; IV
     Route: 042
     Dates: start: 20090408, end: 20090410
  8. CIPROFLOXACIN HCL [Suspect]
     Indication: URINARY TRACT INFECTION
     Dosage: 1 DOSAGE FORM; 1/1 DAY; IV
     Route: 042
     Dates: start: 20090408, end: 20090413
  9. ACETAMINOPHEN [Suspect]
     Indication: PAIN
     Dosage: 4 GRAM; 1 DAY; IV
     Route: 042
     Dates: start: 20090408, end: 20090413
  10. XANAX [Suspect]
     Indication: ANXIETY
     Dosage: .25 MG
     Dates: end: 20090408
  11. ESOMEPRAZOLE MAGNESIUM [Suspect]
     Indication: PROPHYLAXIS
     Dosage: 40 MG; 1/1 DAY
     Dates: end: 20090426
  12. CALCIUM CARBONATE [Suspect]
     Indication: CALCIUM DEFICIENCY
     Dosage: 1 GM;1 DAY
     Dates: end: 20090408
  13. PRIMPERAN INJ [Suspect]
     Indication: NAUSEA
     Dosage: 2 DOSAGE FORM; 1/1 DAY; IV
     Route: 042
     Dates: start: 20090408, end: 20090413

REACTIONS (2)
  - DEEP VEIN THROMBOSIS [None]
  - THROMBOCYTOPENIA [None]
